FAERS Safety Report 15391852 (Version 3)
Quarter: 2018Q4

REPORT INFORMATION
  Report Type: Spontaneous
  Country: JP (occurrence: JP)
  Receive Date: 20180917
  Receipt Date: 20181003
  Transmission Date: 20190204
  Serious: No
  Sender: FDA-Public Use
  Company Number: JP-PFIZER INC-2018369535

PATIENT

DRUGS (1)
  1. HYSRON-H [Suspect]
     Active Substance: MEDROXYPROGESTERONE
     Dosage: UNK (HIGH-DOSE)
     Route: 064

REACTIONS (1)
  - Maternal exposure during pregnancy [Unknown]
